FAERS Safety Report 5341060-3 (Version None)
Quarter: 2007Q2

REPORT INFORMATION
  Report Type: 
  Country: None (occurrence: None)
  Receive Date: 20070405
  Receipt Date: 20070125
  Transmission Date: 20071010
  Serious: No
  Sender: FDA-Public Use
  Company Number: US200701005448

PATIENT
  Age: 57 Year
  Sex: Female

DRUGS (8)
  1. CYMBALTA [Suspect]
     Indication: ANXIETY
     Dosage: 60 MG, DIALY (1/D)
     Dates: start: 20061001
  2. AMIODARONE (DICHLORALPHENAZONE, ISOMETHEPTENE MUCATE, PARACETAMOL) [Concomitant]
  3. LITHIUM CARBONATE [Concomitant]
  4. TRAZODONE HCL [Concomitant]
  5. LORAZEPAM [Concomitant]
  6. INTRON A [Concomitant]
  7. RIBAVIRIN [Concomitant]
  8. ALTACE [Concomitant]

REACTIONS (2)
  - BLOOD PRESSURE INCREASED [None]
  - MIGRAINE [None]
